FAERS Safety Report 10812157 (Version 1)
Quarter: 2015Q1

REPORT INFORMATION
  Report Type: Spontaneous
  Country: US (occurrence: None)
  Receive Date: 20150213
  Receipt Date: 20150213
  Transmission Date: 20150721
  Serious: No
  Sender: FDA-Public Use
  Company Number: None

PATIENT
  Age: 41 Year
  Sex: Male

DRUGS (7)
  1. BACLOFEN. [Concomitant]
     Active Substance: BACLOFEN
  2. AMPYRA [Concomitant]
     Active Substance: DALFAMPRIDINE
  3. MOTRIN [Concomitant]
     Active Substance: IBUPROFEN
  4. VICODIN [Concomitant]
     Active Substance: ACETAMINOPHEN\HYDROCODONE BITARTRATE
  5. AMPYRA [Suspect]
     Active Substance: DALFAMPRIDINE
     Indication: MULTIPLE SCLEROSIS
     Route: 048
     Dates: start: 201005, end: 201403
  6. TECFIDERA [Concomitant]
     Active Substance: DIMETHYL FUMARATE
  7. PROZAC [Concomitant]
     Active Substance: FLUOXETINE HYDROCHLORIDE

REACTIONS (3)
  - Secondary progressive multiple sclerosis [None]
  - Quadriplegia [None]
  - Drug ineffective [None]

NARRATIVE: CASE EVENT DATE: 20140416
